FAERS Safety Report 5847721-1 (Version None)
Quarter: 2008Q3

REPORT INFORMATION
  Report Type: 
  Country: None (occurrence: None)
  Receive Date: 20080815
  Receipt Date: 20080815
  Transmission Date: 20090109
  Serious: Yes (Other)
  Sender: FDA-Public Use
  Company Number: None

PATIENT
  Sex: Female
  Weight: 61.2356 kg

DRUGS (2)
  1. ZEGERID [Suspect]
     Indication: ULCER
     Dosage: ONE CAPSULE 2X DAILY MOUTH
     Route: 048
     Dates: start: 20080701, end: 20080720
  2. PYLORA [Concomitant]

REACTIONS (6)
  - DYSGEUSIA [None]
  - HYPERHIDROSIS [None]
  - INFLUENZA LIKE ILLNESS [None]
  - NAUSEA [None]
  - PALPITATIONS [None]
  - TREMOR [None]
